FAERS Safety Report 13246947 (Version 3)
Quarter: 2017Q1

REPORT INFORMATION
  Report Type: Spontaneous
  Country: JP (occurrence: JP)
  Receive Date: 20170217
  Receipt Date: 20170316
  Transmission Date: 20170428
  Serious: Yes (Life-Threatening, Other)
  Sender: FDA-Public Use
  Company Number: JP-TAKEDA-2017TUS003651

PATIENT
  Age: 55 Year
  Sex: Female
  Weight: 60 kg

DRUGS (13)
  1. CALONAL [Suspect]
     Active Substance: ACETAMINOPHEN
     Indication: SOFT TISSUE SARCOMA
     Dosage: 300 MG, QID
     Route: 048
     Dates: start: 20161222, end: 20161227
  2. MAGNESIUM OXIDE. [Concomitant]
     Active Substance: MAGNESIUM OXIDE
     Indication: CONSTIPATION
     Dosage: 330 MG, TID
     Route: 048
     Dates: start: 20161229, end: 20170130
  3. NIVOLUMAB [Suspect]
     Active Substance: NIVOLUMAB
     Dosage: 240 MG, QD
     Route: 041
     Dates: start: 20161121, end: 20161121
  4. FUROSEMIDE. [Concomitant]
     Active Substance: FUROSEMIDE
     Indication: GENERALISED OEDEMA
     Dosage: 10 MG, BID
     Route: 048
     Dates: start: 20161205, end: 20161206
  5. NEXIUM [Suspect]
     Active Substance: ESOMEPRAZOLE MAGNESIUM
     Indication: GASTROOESOPHAGEAL REFLUX DISEASE
     Dosage: 20 MG, QD
     Route: 048
     Dates: start: 20161204, end: 20170130
  6. FENTOS [Concomitant]
     Active Substance: FENTANYL
     Indication: SOFT TISSUE SARCOMA
     Dosage: 1 MG, QD
     Route: 061
     Dates: start: 20161230, end: 20170104
  7. DECADRON [Concomitant]
     Active Substance: DEXAMETHASONE
     Indication: SOFT TISSUE SARCOMA
     Dosage: 4 MG, QD
     Route: 048
     Dates: start: 20170108, end: 20170130
  8. FUROSEMIDE. [Concomitant]
     Active Substance: FUROSEMIDE
     Dosage: 20 MG, BID
     Route: 048
     Dates: start: 20161207, end: 20170130
  9. FENTOS [Concomitant]
     Active Substance: FENTANYL
     Dosage: 2 MG, QD
     Route: 061
     Dates: start: 20170105, end: 20170130
  10. FEBURIC [Suspect]
     Active Substance: FEBUXOSTAT
     Indication: HYPERURICAEMIA
     Dosage: 10 MG, QD
     Route: 048
     Dates: start: 20161221, end: 20170129
  11. CALONAL [Suspect]
     Active Substance: ACETAMINOPHEN
     Dosage: 400 MG, QID
     Route: 048
     Dates: start: 20161228, end: 20170130
  12. NIVOLUMAB [Suspect]
     Active Substance: NIVOLUMAB
     Indication: PRODUCT USED FOR UNKNOWN INDICATION
     Dosage: 240 MG, QD
     Route: 041
     Dates: start: 20161107, end: 20161107
  13. FENTANYL                           /00174602/ [Concomitant]
     Active Substance: FENTANYL
     Indication: SOFT TISSUE SARCOMA
     Dosage: UNK
     Route: 041

REACTIONS (1)
  - Stevens-Johnson syndrome [Recovered/Resolved]

NARRATIVE: CASE EVENT DATE: 20170125
